FAERS Safety Report 5962592-0 (Version None)
Quarter: 2008Q4

REPORT INFORMATION
  Report Type: 
  Country: None (occurrence: None)
  Receive Date: 20081121
  Receipt Date: 20081112
  Transmission Date: 20090506
  Serious: Yes (Hospitalization)
  Sender: FDA-Public Use
  Company Number: JP-PFIZER INC-2008096174

PATIENT
  Age: 72 Year
  Sex: Female

DRUGS (7)
  1. LIPITOR [Suspect]
     Indication: HYPERLIPIDAEMIA
     Dosage: DAILY DOSE:10MG
     Route: 048
     Dates: end: 20081109
  2. CELECOX [Suspect]
     Indication: OSTEOARTHRITIS
     Dosage: DAILY DOSE:200MG
     Route: 048
     Dates: start: 20081024, end: 20081109
  3. NORVASC [Suspect]
     Route: 048
     Dates: end: 20081109
  4. INFLUENZA VACCINE [Suspect]
     Route: 058
     Dates: start: 20081107, end: 20081109
  5. VALSARTAN [Suspect]
     Dosage: DAILY DOSE:160MG
     Route: 048
     Dates: end: 20081109
  6. OPALMON [Suspect]
     Route: 048
     Dates: end: 20081109
  7. ZANTAC [Suspect]
     Route: 048
     Dates: end: 20081109

REACTIONS (1)
  - STEVENS-JOHNSON SYNDROME [None]
